FAERS Safety Report 5104361-X (Version None)
Quarter: 2006Q3

REPORT INFORMATION
  Report Type: 
  Country: None (occurrence: None)
  Receive Date: 20060731
  Receipt Date: 20060213
  Transmission Date: 20061208
  Serious: Yes (Hospitalization)
  Sender: FDA-Public Use
  Company Number: US-JNJFOC-20060203252

PATIENT
  Age: 68 Year
  Sex: Female
  Weight: 58.9676 kg

DRUGS (3)
  1. RISPERDAL [Suspect]
     Indication: BIPOLAR I DISORDER
     Dosage: 6 MG, IN 1 DAY
     Dates: start: 20060101
  2. LASIX [Concomitant]
  3. DEPAKOTE [Concomitant]

REACTIONS (2)
  - BIPOLAR DISORDER [None]
  - RASH [None]
